FAERS Safety Report 22207989 (Version 1)
Quarter: 2023Q2

REPORT INFORMATION
  Report Type: Spontaneous
  Country: GB (occurrence: GB)
  Receive Date: 20230413
  Receipt Date: 20230413
  Transmission Date: 20230721
  Serious: Yes (Disabling, Other)
  Sender: FDA-Public Use
  Company Number: GB-MHRA-MED-202303241120349670-TPGZD

PATIENT
  Age: 83 Year
  Sex: Male
  Weight: 68 kg

DRUGS (7)
  1. CIPROFLOXACIN [Suspect]
     Active Substance: CIPROFLOXACIN
     Dosage: 1 DF, BID
     Route: 048
     Dates: start: 20230308
  2. ACLIDINIUM BROMIDE [Concomitant]
     Active Substance: ACLIDINIUM BROMIDE
     Indication: Chronic obstructive pulmonary disease
  3. ALLOPURINOL [Concomitant]
     Active Substance: ALLOPURINOL
     Indication: Gout
  4. BECLOMETHASONE DIPROPIONATE [Concomitant]
     Active Substance: BECLOMETHASONE DIPROPIONATE
     Indication: Colitis ulcerative
     Dates: start: 20230207, end: 20230228
  5. DILTIAZEM [Concomitant]
     Active Substance: DILTIAZEM
     Indication: Atrial fibrillation
  6. EDOXABAN [Concomitant]
     Active Substance: EDOXABAN
     Indication: Atrial fibrillation
  7. METFORMIN [Concomitant]
     Active Substance: METFORMIN HYDROCHLORIDE
     Indication: Diabetes mellitus
     Dates: start: 20230301

REACTIONS (5)
  - Tendonitis [Not Recovered/Not Resolved]
  - Disturbance in attention [Unknown]
  - Amnesia [Unknown]
  - Pain in extremity [Unknown]
  - Gait inability [Recovering/Resolving]

NARRATIVE: CASE EVENT DATE: 20230309
